FAERS Safety Report 5993424-2 (Version None)
Quarter: 2008Q4

REPORT INFORMATION
  Report Type: 
  Country: None (occurrence: None)
  Receive Date: 20081212
  Receipt Date: 20081201
  Transmission Date: 20090506
  Serious: Yes (Hospitalization)
  Sender: FDA-Public Use
  Company Number: IT-TEVA-181937ISR

PATIENT
  Age: 35 Year
  Sex: Female

DRUGS (1)
  1. CISPLATIN [Suspect]
     Indication: CERVIX CARCINOMA
     Route: 042

REACTIONS (2)
  - INTESTINAL PERFORATION [None]
  - INTESTINAL STENOSIS [None]
